FAERS Safety Report 8849106 (Version 2)
Quarter: 2012Q4

REPORT INFORMATION
  Report Type: 
  Country: US (occurrence: US)
  Receive Date: 20121019
  Receipt Date: 20121212
  Transmission Date: 20130627
  Serious: Yes (Hospitalization)
  Sender: FDA-Public Use
  Company Number: US-BAYER-2012-106788

PATIENT
  Age: 24 Year
  Sex: Female

DRUGS (5)
  1. YAZ [Suspect]
  2. ROCEPHIN [Concomitant]
     Route: 042
  3. NORMAL SALINE [Concomitant]
     Route: 042
  4. ZOFRAN [Concomitant]
     Route: 042
  5. TORADOL [Concomitant]

REACTIONS (1)
  - Splenic infarction [None]
